FAERS Safety Report 4300918-4 (Version None)
Quarter: 2004Q1

REPORT INFORMATION
  Report Type: 
  Country: None (occurrence: None)
  Receive Date: 20040220
  Receipt Date: 20040129
  Transmission Date: 20041129
  Serious: Yes (Other)
  Sender: FDA-Public Use
  Company Number: WAES 0401USA02223

PATIENT
  Age: 28 Year
  Sex: Female

DRUGS (2)
  1. COSOPT [Suspect]
     Indication: GLAUCOMA
     Route: 047
  2. XALATAN [Concomitant]

REACTIONS (2)
  - BLOOD GLUCOSE INCREASED [None]
  - TREATMENT NONCOMPLIANCE [None]
